FAERS Safety Report 20775131 (Version 1)
Quarter: 2022Q2

REPORT INFORMATION
  Report Type: Spontaneous
  Country: US (occurrence: US)
  Receive Date: 20220502
  Receipt Date: 20220502
  Transmission Date: 20220721
  Serious: No
  Sender: FDA-Public Use
  Company Number: US-PFIZER INC-2020162727

PATIENT
  Age: 46 Year
  Sex: Female

DRUGS (1)
  1. LYRICA [Suspect]
     Active Substance: PREGABALIN
     Dosage: 50 MG, DAILY (MAY TAKE AN ADDITIONAL CAPSULE IN 6-8 HOURS AS NEEDED)
     Route: 048

REACTIONS (1)
  - Blood pressure abnormal [Unknown]
